FAERS Safety Report 8766884 (Version 1)
Quarter: 2012Q4

REPORT INFORMATION
  Report Type: 
  Country: US (occurrence: US)
  Receive Date: 20120903
  Receipt Date: 20120903
  Transmission Date: 20130627
  Serious: Yes (Hospitalization)
  Sender: FDA-Public Use
  Company Number: US-PFIZER INC-2011018729

PATIENT
  Age: 67 Year
  Sex: Female
  Weight: 64.4 kg

DRUGS (5)
  1. LYRICA [Suspect]
     Indication: NEURALGIA
     Dosage: 75 mg, 3x/day
  2. NAMENDA [Concomitant]
     Indication: AMNESIA
     Dosage: 10 mg, 2x/day
  3. ACETYLSALICYLIC ACID [Concomitant]
     Dosage: 81 mg, daily
  4. ENALAPRIL [Concomitant]
     Dosage: 5 mg, daily
  5. ESTRADIOL [Concomitant]
     Dosage: 0.5 mg, daily

REACTIONS (3)
  - Surgery [Unknown]
  - Amnesia [Unknown]
  - Pain [Unknown]
